FAERS Safety Report 21813605 (Version 2)
Quarter: 2023Q1

REPORT INFORMATION
  Report Type: Spontaneous
  Country: US (occurrence: US)
  Receive Date: 20230103
  Receipt Date: 20230203
  Transmission Date: 20230417
  Serious: No
  Sender: FDA-Public Use
  Company Number: US-BRISTOL-MYERS SQUIBB COMPANY-2023-000980

PATIENT
  Age: 59 Year
  Sex: Female

DRUGS (2)
  1. ZEPOSIA [Suspect]
     Active Substance: OZANIMOD HYDROCHLORIDE
     Indication: Multiple sclerosis
     Route: 048
  2. LISINOPRIL [Concomitant]
     Active Substance: LISINOPRIL
     Indication: Product used for unknown indication

REACTIONS (2)
  - Feeling abnormal [Unknown]
  - Weight increased [Unknown]
